FAERS Safety Report 4976643-3 (Version None)
Quarter: 2006Q2

REPORT INFORMATION
  Report Type: 
  Country: None (occurrence: None)
  Receive Date: 20060419
  Receipt Date: 20050519
  Transmission Date: 20061013
  Serious: Yes (Death, Hospitalization)
  Sender: FDA-Public Use
  Company Number: US-MERCK-0505USA02327

PATIENT
  Age: 46 Year
  Sex: Female
  Weight: 121 kg

DRUGS (1)
  1. VIOXX [Suspect]
     Indication: ARTHRALGIA
     Route: 048
     Dates: start: 19991104, end: 20030529

REACTIONS (26)
  - ANXIETY [None]
  - ARTERIOSCLEROSIS CORONARY ARTERY [None]
  - BACK PAIN [None]
  - BRONCHITIS [None]
  - CARDIOMEGALY [None]
  - CHEST PAIN [None]
  - CORONARY ARTERY THROMBOSIS [None]
  - COSTOCHONDRITIS [None]
  - CYST [None]
  - DERMAL CYST [None]
  - DIABETES MELLITUS INADEQUATE CONTROL [None]
  - DYSHIDROSIS [None]
  - DYSPNOEA EXERTIONAL [None]
  - ECZEMA [None]
  - FATIGUE [None]
  - GOITRE [None]
  - HEPATIC STEATOSIS [None]
  - HEPATOMEGALY [None]
  - HYSTERECTOMY [None]
  - INFECTED CYST [None]
  - INSOMNIA [None]
  - NAUSEA [None]
  - NEPHROSCLEROSIS [None]
  - PERICARDIAL EFFUSION [None]
  - VENTRICULAR HYPERTROPHY [None]
  - WEIGHT INCREASED [None]
